FAERS Safety Report 5331018-2 (Version None)
Quarter: 2007Q2

REPORT INFORMATION
  Report Type: 
  Country: None (occurrence: None)
  Receive Date: 20070517
  Receipt Date: 20070511
  Transmission Date: 20071010
  Serious: Yes (Other)
  Sender: FDA-Public Use
  Company Number: 083-20785-07050651

PATIENT
  Sex: 0

DRUGS (2)
  1. THALOMID [Suspect]
     Indication: MULTIPLE MYELOMA
     Dosage: 100 MG, QHS, ORAL
     Route: 048
  2. DEXAMETHASONE TAB [Suspect]
     Indication: MULTIPLE MYELOMA
     Dosage: 40 MG, QD DAYS 1-4, AND 14-17 Q28D, ORAL
     Route: 048

REACTIONS (6)
  - CONSTIPATION [None]
  - DRUG INEFFECTIVE [None]
  - DRUG TOXICITY [None]
  - INTESTINAL INFARCTION [None]
  - NEUROPATHY PERIPHERAL [None]
  - THROMBOSIS [None]
